FAERS Safety Report 9547459 (Version 3)
Quarter: 2014Q1

REPORT INFORMATION
  Report Type: Report from Study
  Country: DE (occurrence: DE)
  Receive Date: 20130924
  Receipt Date: 20140211
  Transmission Date: 20141002
  Serious: Yes (Hospitalization)
  Sender: FDA-Public Use
  Company Number: DE-UCBSA-097962

PATIENT
  Age: 51 Year
  Sex: Female
  Weight: 54 kg

DRUGS (22)
  1. CIMZIA [Suspect]
     Indication: RHEUMATOID ARTHRITIS
     Dosage: DOSE: 200 MG
     Route: 058
     Dates: start: 20120113, end: 20130615
  2. CIMZIA [Suspect]
     Indication: RHEUMATOID ARTHRITIS
     Dosage: DOSE: 200 MG
     Route: 058
     Dates: start: 20130803
  3. PREDNISOLONE [Concomitant]
     Indication: RHEUMATOID ARTHRITIS
     Route: 048
     Dates: start: 20101018, end: 20120814
  4. PREDNISOLONE [Concomitant]
     Indication: RHEUMATOID ARTHRITIS
     Dates: start: 20120815, end: 201212
  5. PREDNISOLONE [Concomitant]
     Indication: RHEUMATOID ARTHRITIS
     Dates: start: 20121204, end: 20130515
  6. PREDNISOLONE [Concomitant]
     Indication: RHEUMATOID ARTHRITIS
     Dates: start: 20130516, end: 20130709
  7. PREDNISOLONE [Concomitant]
     Indication: RHEUMATOID ARTHRITIS
     Dates: start: 20130710, end: 20131108
  8. PREDNISOLONE [Concomitant]
     Indication: RHEUMATOID ARTHRITIS
     Dates: start: 20131109
  9. METHOTREXATE [Concomitant]
     Indication: RHEUMATOID ARTHRITIS
     Dosage: DOSE: 5 MG QS
     Dates: start: 20001018, end: 20120229
  10. METHOTREXATE [Concomitant]
     Indication: RHEUMATOID ARTHRITIS
     Route: 058
     Dates: start: 20120301, end: 20120417
  11. METHOTREXATE [Concomitant]
     Indication: RHEUMATOID ARTHRITIS
     Dosage: DOSE: 10 MG QS
     Dates: start: 20120418
  12. LODOTRA [Concomitant]
     Indication: RHEUMATOID ARTHRITIS
     Route: 048
     Dates: start: 20111014
  13. NOVAMINSULFONE [Concomitant]
     Indication: RHEUMATOID ARTHRITIS
     Dosage: DOSE: 500 MG, 1-2 TIMES DAILY (PRN)
     Route: 048
     Dates: start: 20120815
  14. FOLIC ACID [Concomitant]
     Indication: DRUG TOXICITY PROPHYLAXIS
     Dosage: DOSE: 5 MG QS
     Dates: start: 20001018
  15. MCP (METOCLOPRAMID) [Concomitant]
     Indication: DRUG TOXICITY PROPHYLAXIS
     Dosage: DOSE: 4 MG QS
     Dates: start: 20111206
  16. CA2+ + VITAMINE D [Concomitant]
     Indication: OSTEOPOROSIS PROPHYLAXIS
     Dosage: DOSE: 1000/800 MG
     Dates: start: 20030725
  17. IBUPROFEN [Concomitant]
     Indication: RHEUMATOID ARTHRITIS
     Dosage: DOSE: 400 MG PRN
     Dates: start: 20100624, end: 201304
  18. DICLOFENAC [Concomitant]
     Indication: RHEUMATOID ARTHRITIS
     Dates: start: 20120522
  19. PANTOPREZOL [Concomitant]
     Indication: PROPHYLAXIS
     Dosage: DOSE: 40 MG QOD
     Dates: start: 20080310
  20. TRIAMCINOLON [Concomitant]
     Indication: ARTHRITIS
     Dosage: DOSE: 40 MG ONCE I.A
     Dates: start: 20120815, end: 20120815
  21. CLEXANE [Concomitant]
     Indication: THROMBOSIS PROPHYLAXIS
     Dates: start: 20121114, end: 201212
  22. CLEXANE [Concomitant]
     Indication: THROMBOSIS PROPHYLAXIS
     Dates: start: 20130705, end: 20130705

REACTIONS (4)
  - Arthritis [Recovered/Resolved]
  - Synovial cyst [Recovered/Resolved]
  - Meniscus injury [Recovered/Resolved]
  - Synovectomy [Recovered/Resolved]
